FAERS Safety Report 16893208 (Version 1)
Quarter: 2019Q4

REPORT INFORMATION
  Report Type: Spontaneous
  Country: IT (occurrence: IT)
  Receive Date: 20191008
  Receipt Date: 20191008
  Transmission Date: 20200122
  Serious: Yes (Hospitalization)
  Sender: FDA-Public Use
  Company Number: IT-TEVA-2019-IT-1117770

PATIENT
  Age: 85 Year
  Sex: Female

DRUGS (1)
  1. ESCITALOPRAM OXALATE. [Suspect]
     Active Substance: ESCITALOPRAM OXALATE
     Indication: PRODUCT ADMINISTRATION ERROR
     Route: 048
     Dates: start: 20190830, end: 20190830

REACTIONS (5)
  - Muscle contractions involuntary [Recovering/Resolving]
  - Paraesthesia [Recovering/Resolving]
  - Sopor [Recovering/Resolving]
  - Malaise [Recovering/Resolving]
  - Medication error [Recovering/Resolving]

NARRATIVE: CASE EVENT DATE: 20190830
